FAERS Safety Report 16783696 (Version 4)
Quarter: 2020Q1

REPORT INFORMATION
  Report Type: Report from Study
  Country: None (occurrence: FR)
  Receive Date: 20190908
  Receipt Date: 20200329
  Transmission Date: 20200409
  Serious: Yes (Hospitalization, Other)
  Sender: FDA-Public Use
  Company Number: FR-ABBVIE-19S-056-2792324-00

PATIENT
  Age: 75 Year
  Sex: Male

DRUGS (5)
  1. DUODOPA [Suspect]
     Active Substance: CARBIDOPA\LEVODOPA
     Dosage: RESUME TREATMENT WITH DUODOPA
     Route: 050
  2. DUODOPA [Suspect]
     Active Substance: CARBIDOPA\LEVODOPA
     Dosage: MORNING DOSE: 15 ML, DAILY CONTINUOUS FLOW RATE 4.3 ML/H
     Route: 050
     Dates: start: 20190528
  3. DUODOPA [Suspect]
     Active Substance: CARBIDOPA\LEVODOPA
     Dosage: MDL; CONTINOUS FR (DURING A DAY) 5.2ML/H; ED 5ML
     Route: 050
     Dates: start: 20190429, end: 2019
  4. APOKINON [Concomitant]
     Active Substance: APOMORPHINE
     Indication: PRODUCT USED FOR UNKNOWN INDICATION
  5. DUODOPA [Suspect]
     Active Substance: CARBIDOPA\LEVODOPA
     Indication: PARKINSON^S DISEASE
     Dosage: MORNING DOSE: 15 ML, DAILY CONTINUOUS FLOW RATE 4.3 ML/H?DECREASED
     Route: 050
     Dates: start: 20181112

REACTIONS (9)
  - Subileus [Unknown]
  - Mass [Not Recovered/Not Resolved]
  - Stoma site discharge [Unknown]
  - Obstruction [Unknown]
  - Dyskinesia [Not Recovered/Not Resolved]
  - Stoma site extravasation [Unknown]
  - Device physical property issue [Unknown]
  - Fall [Not Recovered/Not Resolved]
  - Stoma site erythema [Unknown]

NARRATIVE: CASE EVENT DATE: 20190605
